FAERS Safety Report 20031187 (Version 1)
Quarter: 2021Q4

REPORT INFORMATION
  Report Type: Spontaneous
  Country: US (occurrence: US)
  Receive Date: 20211103
  Receipt Date: 20211103
  Transmission Date: 20220303
  Serious: Yes (Other)
  Sender: FDA-Public Use
  Company Number: US-NOVARTISPH-NVSC2021US242530

PATIENT
  Sex: Male

DRUGS (9)
  1. BICALUTAMIDE [Suspect]
     Active Substance: BICALUTAMIDE
     Indication: Hormone-refractory prostate cancer
     Dosage: UNK
     Route: 065
     Dates: start: 20180906, end: 20190417
  2. DOCETAXEL [Suspect]
     Active Substance: DOCETAXEL
     Indication: Hormone-refractory prostate cancer
     Dosage: (C1D1)
     Route: 065
     Dates: start: 20200807
  3. DOCETAXEL [Suspect]
     Active Substance: DOCETAXEL
     Dosage: C3D1 (LOCAL CHEMO)
     Route: 065
     Dates: start: 20200925
  4. DOCETAXEL [Suspect]
     Active Substance: DOCETAXEL
     Dosage: (C5)
     Route: 065
     Dates: start: 202010
  5. CARBOPLATIN [Suspect]
     Active Substance: CARBOPLATIN
     Indication: Hormone-refractory prostate cancer
     Dosage: (C1)
     Route: 065
     Dates: start: 202012
  6. CABAZITAXEL [Suspect]
     Active Substance: CABAZITAXEL
     Indication: Hormone-refractory prostate cancer
     Dosage: (C1)
     Route: 065
     Dates: start: 202012
  7. PROVENGE [Suspect]
     Active Substance: SIPULEUCEL-T
     Indication: Hormone-refractory prostate cancer
     Dosage: UNK
     Route: 065
     Dates: start: 201910
  8. ZYTIGA [Suspect]
     Active Substance: ABIRATERONE ACETATE
     Indication: Hormone-refractory prostate cancer
     Dosage: UNK
     Route: 065
     Dates: start: 20190605
  9. XTANDI [Suspect]
     Active Substance: ENZALUTAMIDE
     Indication: Hormone-refractory prostate cancer
     Dosage: UNK
     Route: 065
     Dates: start: 202106

REACTIONS (9)
  - Hydronephrosis [Unknown]
  - Urinary retention [Unknown]
  - Ureteric obstruction [Unknown]
  - Hormone-refractory prostate cancer [Unknown]
  - Malignant neoplasm progression [Unknown]
  - Haematuria [Recovered/Resolved]
  - Product use in unapproved indication [Unknown]
  - Device leakage [Unknown]
  - Treatment failure [Unknown]

NARRATIVE: CASE EVENT DATE: 20190306
